FAERS Safety Report 5608914-1 (Version None)
Quarter: 2008Q1

REPORT INFORMATION
  Report Type: 
  Country: None (occurrence: None)
  Receive Date: 20080129
  Receipt Date: 20080129
  Transmission Date: 20080703
  Serious: No
  Sender: FDA-Public Use
  Company Number: None

PATIENT
  Age: 38 Year

DRUGS (1)
  1. LIPITOR [Suspect]
     Dosage: 20 MG 1 PO QHS
     Route: 048

REACTIONS (3)
  - IDIOSYNCRATIC DRUG REACTION [None]
  - MYALGIA [None]
  - PAIN IN EXTREMITY [None]
